FAERS Safety Report 6436438 (Version 5)
Quarter: 2019Q3

REPORT INFORMATION
  Report Type: Spontaneous
  Country: JP (occurrence: JP)
  Receive Date: 20071005
  Receipt Date: 20190820
  Transmission Date: 20191005
  Serious: Yes (Life-Threatening)
  Sender: FDA-Public Use
  Company Number: JP-BAYER-200510548BYL

PATIENT
  Age: 72 Year
  Sex: Male
  Weight: 69 kg

DRUGS (13)
  1. AMLODIPINE [Concomitant]
     Active Substance: AMLODIPINE BESYLATE
     Dosage: 5 MG
     Route: 048
     Dates: end: 200510
  2. MINOMYCIN [Concomitant]
     Active Substance: MINOCYCLINE HYDROCHLORIDE
     Dosage: 100 MG
     Route: 041
     Dates: start: 20051010, end: 20051012
  3. CIPROXAN-I.V.300 [Suspect]
     Active Substance: CIPROFLOXACIN
     Indication: CHOLANGITIS
     Dosage: 600 MG (DAILY DOSE), , INTRAVENOUS
     Route: 042
     Dates: start: 20051005, end: 20051009
  4. BAYASPIRIN [Concomitant]
     Active Substance: ASPIRIN
     Dosage: 100 MG
     Route: 048
     Dates: end: 200510
  5. GASTROM [Concomitant]
     Active Substance: ECABET SODIUM
     Dosage: 3.0 G (DAILY DOSE), BID, ORAL
     Route: 048
     Dates: start: 20050922, end: 20050926
  6. OMNIPAQUE [Concomitant]
     Active Substance: IOHEXOL
     Route: 042
     Dates: start: 20051019
  7. CIPROXAN-I.V.300 [Suspect]
     Active Substance: CIPROFLOXACIN
     Indication: CHOLECYSTITIS
     Dosage: 600 MG (DAILY DOSE), , INTRAVENOUS
     Route: 042
     Dates: start: 20050928, end: 20050930
  8. BEZAFIBRATE [Concomitant]
     Active Substance: BEZAFIBRATE
     Route: 048
     Dates: end: 200510
  9. GASTER [Concomitant]
     Active Substance: FAMOTIDINE
     Dosage: 2 DF (DAILY DOSE), , ORAL
     Route: 048
     Dates: start: 20050922, end: 20050926
  10. NU-LOTAN [Concomitant]
     Active Substance: LOSARTAN POTASSIUM
     Dosage: 50 MG
     Route: 048
     Dates: end: 200510
  11. VOLTAREN [DICLOFENAC] [Concomitant]
     Active Substance: DICLOFENAC SODIUM
     Dosage: 1 DF (DAILY DOSE), QID, RECTAL
     Route: 054
     Dates: start: 20050822, end: 20050926
  12. CRAVIT [Concomitant]
     Active Substance: LEVOFLOXACIN
     Dosage: 2 DF (DAILY DOSE), BID, ORAL
     Route: 048
     Dates: start: 20050922, end: 20050926
  13. VANCOMYCIN HYDROCHLORIDE. [Concomitant]
     Active Substance: VANCOMYCIN HYDROCHLORIDE
     Dosage: 500 MG
     Route: 048
     Dates: start: 20051017, end: 20051028

REACTIONS (8)
  - Nephrotic syndrome [Recovered/Resolved]
  - Henoch-Schonlein purpura [Recovered/Resolved]
  - Tendonitis [Recovered/Resolved]
  - Nephritis [Recovered/Resolved]
  - Oedema peripheral [Unknown]
  - Tendonitis [Recovered/Resolved]
  - Tendon pain [Recovered/Resolved]
  - Rash [Unknown]

NARRATIVE: CASE EVENT DATE: 200510
